FAERS Safety Report 16056831 (Version 1)
Quarter: 2019Q2

REPORT INFORMATION
  Report Type: Spontaneous
  Country: US (occurrence: US)
  Receive Date: 20190311
  Receipt Date: 20190311
  Transmission Date: 20190711
  Serious: Yes (Hospitalization)
  Sender: FDA-Public Use
  Company Number: None

PATIENT
  Age: 76 Year
  Sex: Female
  Weight: 58.8 kg

DRUGS (2)
  1. WARFARIN [Suspect]
     Active Substance: WARFARIN
     Indication: MESENTERIC ARTERY EMBOLISM
     Dosage: ?          OTHER FREQUENCY:QDAY, + 5MG SAT.;?
     Route: 048
  2. WARFARIN [Suspect]
     Active Substance: WARFARIN
     Indication: PORTAL VEIN THROMBOSIS
     Dosage: ?          OTHER FREQUENCY:QDAY, + 5MG SAT.;?
     Route: 048

REACTIONS (5)
  - Faeces discoloured [None]
  - Seizure [None]
  - Haematocrit decreased [None]
  - Fall [None]
  - Haemoglobin decreased [None]

NARRATIVE: CASE EVENT DATE: 20190201
